FAERS Safety Report 8379198-9 (Version None)
Quarter: 2012Q2

REPORT INFORMATION
  Report Type: 
  Country: None (occurrence: None)
  Receive Date: 20120523
  Receipt Date: 20120518
  Transmission Date: 20120825
  Serious: Yes (Other)
  Sender: FDA-Public Use
  Company Number: CR-BAYER-2012-035626

PATIENT
  Age: 42 Year
  Sex: Female

DRUGS (3)
  1. ATENOLOL [Concomitant]
     Indication: HYPERTENSION
     Dosage: DAILY DOSE 50 MG
  2. MIRENA [Suspect]
     Dosage: 20 MCG/24HR, QD
     Route: 015
     Dates: end: 20120401
  3. ATENOLOL [Concomitant]
     Dosage: DAILY DOSE 100 MG
     Route: 048

REACTIONS (4)
  - HAIR FOLLICLE TUMOUR BENIGN [None]
  - LIBIDO DECREASED [None]
  - HYPERTENSIVE CRISIS [None]
  - BREAST PAIN [None]
